FAERS Safety Report 5809775-8 (Version None)
Quarter: 2008Q3

REPORT INFORMATION
  Report Type: 
  Country: None (occurrence: None)
  Receive Date: 20080715
  Receipt Date: 20080711
  Transmission Date: 20090109
  Serious: Yes (Other)
  Sender: FDA-Public Use
  Company Number: CA-ASTRAZENECA-2008UW13692

PATIENT
  Age: 856 Month
  Sex: Female
  Weight: 71.8 kg

DRUGS (4)
  1. CRESTOR [Suspect]
     Indication: HYPERLIPIDAEMIA
     Route: 048
     Dates: start: 20080401, end: 20080708
  2. DOMPERIDON [Concomitant]
     Route: 048
     Dates: start: 20070101
  3. NEXIUM [Concomitant]
     Route: 048
     Dates: start: 20070101
  4. SYNTHROID [Concomitant]
     Indication: THYROID DISORDER
     Route: 048
     Dates: start: 20070101

REACTIONS (1)
  - PAIN IN EXTREMITY [None]
